FAERS Safety Report 23774007 (Version 1)
Quarter: 2024Q2

REPORT INFORMATION
  Report Type: Spontaneous
  Country: SE (occurrence: SE)
  Receive Date: 20240423
  Receipt Date: 20240423
  Transmission Date: 20240716
  Serious: Yes (Other)
  Sender: FDA-Public Use
  Company Number: None

PATIENT
  Age: 59 Year
  Sex: Female

DRUGS (4)
  1. FLUOROURACIL [Suspect]
     Active Substance: FLUOROURACIL
     Indication: Product used for unknown indication
     Dosage: A TOTAL OF 5 INJECTIONS
     Route: 065
  2. kloramfenikol [Concomitant]
     Indication: Product used for unknown indication
     Route: 065
  3. NEVANAC [Concomitant]
     Active Substance: NEPAFENAC
     Indication: Product used for unknown indication
     Route: 065
  4. OPNOL [Concomitant]
     Indication: Product used for unknown indication
     Route: 065

REACTIONS (1)
  - Corneal opacity [Recovering/Resolving]

NARRATIVE: CASE EVENT DATE: 20240226
